FAERS Safety Report 8832483 (Version 1)
Quarter: 2012Q4

REPORT INFORMATION
  Report Type: Spontaneous
  Country: US (occurrence: None)
  Receive Date: 20121009
  Receipt Date: 20121009
  Transmission Date: 20130627
  Serious: Yes (Other)
  Sender: FDA-Public Use
  Company Number: None

PATIENT
  Sex: Female
  Weight: 136.08 kg

DRUGS (1)
  1. TOPIRAMATE [Suspect]
     Indication: EPILEPSY
     Dosage: 100mg 2xbid po
     Route: 048

REACTIONS (1)
  - Convulsion [None]
